FAERS Safety Report 9216286 (Version 1)
Quarter: 2013Q2

REPORT INFORMATION
  Report Type: Spontaneous
  Country: IT (occurrence: None)
  Receive Date: 20130404
  Receipt Date: 20130404
  Transmission Date: 20140414
  Serious: Yes (Hospitalization)
  Sender: FDA-Public Use
  Company Number: 2013-087

PATIENT
  Age: 48 Year
  Sex: Female

DRUGS (2)
  1. CLOZAPINE [Suspect]
     Indication: CATATONIA
     Route: 048
     Dates: end: 200812
  2. DOXAZOSIN ACTAVIS (DOXAZOSIN MESILATE) [Concomitant]

REACTIONS (4)
  - Neuroleptic malignant syndrome [None]
  - Intentional overdose [None]
  - Urinary retention [None]
  - Catatonia [None]
